FAERS Safety Report 6756741-4 (Version None)
Quarter: 2010Q2

REPORT INFORMATION
  Report Type: 
  Country: None (occurrence: None)
  Receive Date: 20100604
  Receipt Date: 20100524
  Transmission Date: 20101027
  Serious: Yes (Other)
  Sender: FDA-Public Use
  Company Number: FR-TEVA-235864ISR

PATIENT
  Age: 39 Year
  Sex: Male

DRUGS (7)
  1. VINCRISTINE [Interacting]
  2. LOPINAVIR AND RITONAVIR [Suspect]
     Dosage: 400MG/100MG
  3. ABACAVIR SULFATE/LAMIVUDINE [Concomitant]
  4. CYCLOPHOSPHAMIDE [Concomitant]
  5. DOXORUBICIN HCL [Concomitant]
  6. METHOTREXATE [Concomitant]
  7. CYTARABINE [Concomitant]

REACTIONS (2)
  - DRUG INTERACTION [None]
  - ILEUS PARALYTIC [None]
